FAERS Safety Report 18998133 (Version 1)
Quarter: 2021Q1

REPORT INFORMATION
  Report Type: Spontaneous
  Country: US (occurrence: US)
  Receive Date: 20210311
  Receipt Date: 20210311
  Transmission Date: 20210420
  Serious: No
  Sender: FDA-Public Use
  Company Number: US-PFIZER INC-2021212046

PATIENT
  Age: 58 Year
  Sex: Female

DRUGS (1)
  1. NEURONTIN [Suspect]
     Active Substance: GABAPENTIN
     Indication: BACK INJURY
     Dosage: UNK

REACTIONS (3)
  - Injury [Unknown]
  - Fall [Unknown]
  - Off label use [Unknown]
